FAERS Safety Report 5141950-0 (Version None)
Quarter: 2006Q4

REPORT INFORMATION
  Report Type: 
  Country: None (occurrence: None)
  Receive Date: 20061102
  Receipt Date: 20060705
  Transmission Date: 20070319
  Serious: Yes (Hospitalization)
  Sender: FDA-Public Use
  Company Number: PHBS2006JP10180

PATIENT
  Age: 12 Year
  Sex: Female

DRUGS (3)
  1. NEORAL [Suspect]
     Indication: STEM CELL TRANSPLANT
     Dosage: 90 MG/DAY
     Route: 065
     Dates: start: 20020101
  2. MYCOPHENOLATE MOFETIL [Concomitant]
     Indication: STEM CELL TRANSPLANT
     Route: 065
  3. PREDONINE [Concomitant]
     Indication: GRAFT VERSUS HOST DISEASE
     Dosage: 60 MG/DAY
     Dates: start: 20020101

REACTIONS (5)
  - HAEMOLYTIC URAEMIC SYNDROME [None]
  - INFLUENZA [None]
  - PNEUMOCOCCAL INFECTION [None]
  - PULMONARY PNEUMATOCELE [None]
  - RENAL IMPAIRMENT [None]
